FAERS Safety Report 23951262 (Version 1)
Quarter: 2024Q2

REPORT INFORMATION
  Report Type: Spontaneous
  Country: CN (occurrence: CN)
  Receive Date: 20240607
  Receipt Date: 20240607
  Transmission Date: 20240716
  Serious: Yes (Other)
  Sender: FDA-Public Use
  Company Number: CN-BAYER-2024A082738

PATIENT
  Age: 54 Year
  Sex: Male

DRUGS (1)
  1. MOXIFLOXACIN [Suspect]
     Active Substance: MOXIFLOXACIN
     Indication: Pneumonia legionella
     Dosage: UNK
     Dates: start: 202305, end: 202305

REACTIONS (4)
  - Respiratory distress [None]
  - Rash [Recovered/Resolved]
  - Off label use [None]
  - Drug ineffective for unapproved indication [None]

NARRATIVE: CASE EVENT DATE: 20230501
